FAERS Safety Report 8090576-8 (Version None)
Quarter: 2012Q1

REPORT INFORMATION
  Report Type: 
  Country: None (occurrence: None)
  Receive Date: 20120129
  Receipt Date: 20111120
  Transmission Date: 20120608
  Serious: No
  Sender: FDA-Public Use
  Company Number: US-ABBOTT-11P-163-0873751-00

PATIENT
  Sex: Female

DRUGS (4)
  1. LOMOTIL [Concomitant]
     Indication: PRODUCT USED FOR UNKNOWN INDICATION
     Dosage: PRN
  2. VITAMIN A + D [Concomitant]
     Indication: PRODUCT USED FOR UNKNOWN INDICATION
  3. DICYCLOMINE [Concomitant]
     Indication: ABDOMINAL PAIN UPPER
  4. HUMIRA [Suspect]
     Indication: CROHN'S DISEASE
     Route: 058
     Dates: start: 20111021, end: 20111104

REACTIONS (10)
  - DYSPNOEA [None]
  - SOMNOLENCE [None]
  - VIRAL UPPER RESPIRATORY TRACT INFECTION [None]
  - PYREXIA [None]
  - BRONCHITIS [None]
  - COUGH [None]
  - DIARRHOEA [None]
  - STREPTOCOCCAL INFECTION [None]
  - BLISTER [None]
  - SEASONAL ALLERGY [None]
